FAERS Safety Report 9918796 (Version 2)
Quarter: 2014Q1

REPORT INFORMATION
  Report Type: Report from Study
  Country: US (occurrence: US)
  Receive Date: 20140224
  Receipt Date: 20140305
  Transmission Date: 20141002
  Serious: Yes (Hospitalization)
  Sender: FDA-Public Use
  Company Number: US-ROCHE-1351423

PATIENT
  Sex: Female
  Weight: 74.91 kg

DRUGS (9)
  1. RANIBIZUMAB [Suspect]
     Indication: DIABETIC RETINAL OEDEMA
     Route: 050
     Dates: start: 20140114
  2. AMLODIPINE [Concomitant]
  3. GABAPENTIN [Concomitant]
  4. LISINOPRIL [Concomitant]
  5. FERROUS FUMARATE [Concomitant]
  6. ECOTRIN [Concomitant]
  7. GLIMEPIRIDE [Concomitant]
  8. CARVEDILOL [Concomitant]
  9. SIMVASTATIN [Concomitant]

REACTIONS (2)
  - Urinary tract infection [Unknown]
  - Fall [Unknown]
